FAERS Safety Report 9244995 (Version 1)
Quarter: 2013Q2

REPORT INFORMATION
  Report Type: Spontaneous
  Country: CN (occurrence: CN)
  Receive Date: 20130422
  Receipt Date: 20130422
  Transmission Date: 20140414
  Serious: Yes (Death, Life-Threatening)
  Sender: FDA-Public Use
  Company Number: CN-JNJFOC-20130410817

PATIENT
  Sex: 0

DRUGS (5)
  1. ITRACONAZOLE [Suspect]
     Indication: ANTIFUNGAL PROPHYLAXIS
     Route: 042
  2. VORICONAZOLE [Suspect]
     Indication: ANTIFUNGAL PROPHYLAXIS
     Dosage: FOR 14 DAYS
     Route: 042
  3. VORICONAZOLE [Suspect]
     Indication: ANTIFUNGAL PROPHYLAXIS
     Dosage: TWO INITIAL DOSES
     Route: 042
  4. VORICONAZOLE [Suspect]
     Indication: ANTIFUNGAL PROPHYLAXIS
     Dosage: SEQUENTIALLY
     Route: 048
  5. CYCLOSPORINE A [Interacting]
     Indication: IMMUNOSUPPRESSION
     Route: 065

REACTIONS (3)
  - Idiopathic pneumonia syndrome [Fatal]
  - Acute graft versus host disease in skin [Fatal]
  - Drug interaction [Unknown]
